FAERS Safety Report 6780039-1 (Version None)
Quarter: 2010Q2

REPORT INFORMATION
  Report Type: 
  Country: None (occurrence: None)
  Receive Date: 20100618
  Receipt Date: 20100611
  Transmission Date: 20101027
  Serious: Yes (Other)
  Sender: FDA-Public Use
  Company Number: GB-TEVA-237573ISR

PATIENT
  Sex: Female

DRUGS (2)
  1. AMITRIPTYLINE HCL [Suspect]
  2. IMATINIB MESYLATE [Suspect]
     Indication: GASTROINTESTINAL STROMAL TUMOUR

REACTIONS (4)
  - DIARRHOEA [None]
  - DRUG INTERACTION [None]
  - DRUG LEVEL DECREASED [None]
  - GENE MUTATION IDENTIFICATION TEST POSITIVE [None]
